FAERS Safety Report 20891681 (Version 1)
Quarter: 2022Q2

REPORT INFORMATION
  Report Type: Other
  Country: ES (occurrence: ES)
  Receive Date: 20220530
  Receipt Date: 20220530
  Transmission Date: 20220721
  Serious: Yes (Life-Threatening, Hospitalization)
  Sender: FDA-Public Use
  Company Number: ES-CELLTRION HEALTHCARE HUNGARY KFT-2022ES006639

PATIENT

DRUGS (12)
  1. RITUXIMAB [Suspect]
     Active Substance: RITUXIMAB
     Indication: Follicular lymphoma stage IV
     Dosage: 5TH DOSE
     Route: 041
     Dates: start: 20210527
  2. RITUXIMAB [Suspect]
     Active Substance: RITUXIMAB
     Dosage: 6TH DOSE
     Route: 041
     Dates: start: 20211001
  3. RITUXIMAB [Suspect]
     Active Substance: RITUXIMAB
     Dosage: 4TH DOSE
     Route: 041
     Dates: start: 202105
  4. RITUXIMAB [Suspect]
     Active Substance: RITUXIMAB
     Dosage: 375 MG/M2, BIMONTHLY
     Route: 041
     Dates: start: 202010
  5. RITUXIMAB [Suspect]
     Active Substance: RITUXIMAB
     Dosage: 375 MG/M2 DAY 1, ONCE EVERY 21 DAYS
     Route: 041
     Dates: start: 202004, end: 202008
  6. VINCRISTINE [Suspect]
     Active Substance: VINCRISTINE
     Indication: Follicular lymphoma
     Dosage: 1.4 MG/M2 DAY 1, EVERY 21 DAYS
     Route: 065
     Dates: start: 202004, end: 202008
  7. PREDNISOLONE [Suspect]
     Active Substance: PREDNISOLONE
     Indication: Follicular lymphoma
     Dosage: 100 MG/24 H DAYS 1-5, EVERY 21 DAYS
     Route: 065
     Dates: start: 202004, end: 202008
  8. CYCLOPHOSPHAMIDE [Suspect]
     Active Substance: CYCLOPHOSPHAMIDE
     Indication: Follicular lymphoma
     Dosage: 750 MG/M2 DAY 1, EVERY 21 DAYS
     Route: 065
     Dates: start: 202004, end: 202008
  9. DOXORUBICIN [Suspect]
     Active Substance: DOXORUBICIN
     Indication: Follicular lymphoma
     Dosage: 50 MG/M2 DAY 1, EVERY 21 DAYS
     Route: 065
     Dates: start: 202004, end: 202008
  10. ELASOMERAN [Concomitant]
     Active Substance: ELASOMERAN
     Indication: Immunisation
     Dosage: 2 DOSES IN MAY AND JUNE 2021
     Dates: start: 20210505
  11. ELASOMERAN [Concomitant]
     Active Substance: ELASOMERAN
     Dosage: THIRD DOSE
     Dates: start: 20211123
  12. ELASOMERAN [Concomitant]
     Active Substance: ELASOMERAN
     Dosage: 2 DOSES IN MAY AND JUNE 2021
     Dates: start: 20210601

REACTIONS (6)
  - Neutropenia [Unknown]
  - Vaccination failure [Unknown]
  - Immunodeficiency [Unknown]
  - Breakthrough COVID-19 [Recovered/Resolved]
  - Thrombocytopenia [Unknown]
  - COVID-19 pneumonia [Recovered/Resolved]

NARRATIVE: CASE EVENT DATE: 20210701
